FAERS Safety Report 7161697-9 (Version None)
Quarter: 2010Q4

REPORT INFORMATION
  Report Type: 
  Country: None (occurrence: None)
  Receive Date: 20101201
  Receipt Date: 20101124
  Transmission Date: 20110411
  Serious: Yes (Other)
  Sender: FDA-Public Use
  Company Number: 2010SP061894

PATIENT
  Age: 30 Year
  Sex: Female

DRUGS (1)
  1. NASONEX [Suspect]
     Indication: CHRONIC SINUSITIS
     Dosage: 200 MCG;QD
     Dates: start: 20101102

REACTIONS (1)
  - TACHYCARDIA [None]
